FAERS Safety Report 19139246 (Version 1)
Quarter: 2021Q2

REPORT INFORMATION
  Report Type: Spontaneous
  Country: US (occurrence: US)
  Receive Date: 20210415
  Receipt Date: 20210415
  Transmission Date: 20210717
  Serious: Yes (Hospitalization, Other)
  Sender: FDA-Public Use
  Company Number: US-IPCA LABORATORIES LIMITED-IPC-2021-US-000863

PATIENT

DRUGS (5)
  1. TRAMADOL HYDROCHLORIDE TABLET [Suspect]
     Active Substance: TRAMADOL HYDROCHLORIDE
     Indication: PRODUCT USED FOR UNKNOWN INDICATION
     Dosage: 50 MILLIGRAM, 5?15 TABLET
     Route: 048
  2. LORAZEPAM TABLET [Suspect]
     Active Substance: LORAZEPAM
     Indication: PRODUCT USED FOR UNKNOWN INDICATION
     Dosage: 1 MILLIGRAM, 26 TABLET
     Route: 048
  3. ALPRAZOLAM TABLET [Suspect]
     Active Substance: ALPRAZOLAM
     Indication: PRODUCT USED FOR UNKNOWN INDICATION
     Dosage: 2 MILLIGRAM, 30 TABLET
     Route: 048
  4. CODEINE TABLET [Suspect]
     Active Substance: CODEINE
     Indication: PRODUCT USED FOR UNKNOWN INDICATION
     Dosage: 50 MILLIGRAM, 5?15 TABLET
     Route: 048
  5. ACETAMINOPHEN TABLET [Concomitant]
     Active Substance: ACETAMINOPHEN
     Indication: PRODUCT USED FOR UNKNOWN INDICATION
     Dosage: 50 MILLIGRAM, 5?15 TABLET
     Route: 048

REACTIONS (5)
  - Overdose [Unknown]
  - Somnolence [Recovered/Resolved]
  - Hypertension [Recovered/Resolved]
  - Suicidal ideation [Unknown]
  - Hypoglycaemia [Recovered/Resolved]
